FAERS Safety Report 7137846-5 (Version None)
Quarter: 2010Q4

REPORT INFORMATION
  Report Type: 
  Country: None (occurrence: None)
  Receive Date: 20101206
  Receipt Date: 20100920
  Transmission Date: 20110411
  Serious: Yes (Other)
  Sender: FDA-Public Use
  Company Number: US-NAPPMUNDI-USA-2010-0047160

PATIENT
  Sex: Male

DRUGS (1)
  1. OXYCONTIN [Suspect]
     Indication: BACK PAIN
     Dosage: 160 MG, TID
     Route: 048

REACTIONS (11)
  - ABDOMINAL DISTENSION [None]
  - CONVULSION [None]
  - FATIGUE [None]
  - INADEQUATE ANALGESIA [None]
  - INTENTIONAL DRUG MISUSE [None]
  - MALAISE [None]
  - MEDICATION RESIDUE [None]
  - MIGRAINE [None]
  - NERVE INJURY [None]
  - PAIN [None]
  - UNEVALUABLE EVENT [None]
